FAERS Safety Report 8934410 (Version 4)
Quarter: 2013Q1

REPORT INFORMATION
  Report Type: Report from Study
  Country: US (occurrence: US)
  Receive Date: 20121129
  Receipt Date: 20130214
  Transmission Date: 20140127
  Serious: No
  Sender: FDA-Public Use
  Company Number: US-VERTEX PHARMACEUTICAL INC.-2012-023753

PATIENT
  Age: 42 Year
  Sex: Male
  Weight: 100 kg

DRUGS (7)
  1. VX-950 (TELAPREVIR) [Suspect]
     Indication: HEPATITIS C
     Dosage: 750 MG, TID
     Route: 048
     Dates: start: 20121005
  2. PEGASYS [Suspect]
     Indication: HEPATITIS C
     Dosage: 180 ?G, QW
     Route: 058
     Dates: start: 20121005
  3. RIBAVIRIN [Suspect]
     Indication: HEPATITIS C
     Dosage: 600 MG, BID
     Route: 048
     Dates: start: 20121005
  4. CETRIZINE [Concomitant]
  5. TRAZODONE [Concomitant]
  6. TESSALON PERLES [Concomitant]
  7. IBUPROFEN [Concomitant]

REACTIONS (7)
  - Drug dose omission [Recovered/Resolved]
  - Decreased appetite [Not Recovered/Not Resolved]
  - Rash erythematous [Recovered/Resolved]
  - Excoriation [Unknown]
  - Diarrhoea [Not Recovered/Not Resolved]
  - Anorectal discomfort [Not Recovered/Not Resolved]
  - Pruritus [Unknown]
